FAERS Safety Report 5949941-4 (Version None)
Quarter: 2008Q4

REPORT INFORMATION
  Report Type: 
  Country: None (occurrence: None)
  Receive Date: 20081112
  Receipt Date: 20081030
  Transmission Date: 20090506
  Serious: Yes (Other)
  Sender: FDA-Public Use
  Company Number: NZ-ELI_LILLY_AND_COMPANY-NZ200810007420

PATIENT
  Age: 45 Year
  Sex: Female

DRUGS (8)
  1. ZYPREXA [Suspect]
     Indication: DEPRESSION
     Dosage: 10 MG, UNK
     Route: 048
  2. ZYPREXA [Suspect]
     Dosage: 7.5 MG, UNK
  3. ZYPREXA [Suspect]
     Dosage: 5 MG, UNK
  4. ZYPREXA [Suspect]
     Dosage: 2.5 MG, UNK
  5. ZYPREXA [Suspect]
     Dosage: 10 MG, UNK
  6. CITALOPRAM HYDROBROMIDE [Concomitant]
     Indication: DEPRESSION
     Dosage: 60 MG, UNK
  7. ARIPIPRAZOLE [Concomitant]
     Dosage: 5 MG, UNK
  8. ARIPIPRAZOLE [Concomitant]
     Dosage: 10 MG, UNK

REACTIONS (4)
  - DISEASE RECURRENCE [None]
  - HEPATIC ENZYME INCREASED [None]
  - JOINT SWELLING [None]
  - WEIGHT INCREASED [None]
